FAERS Safety Report 5209928-6 (Version None)
Quarter: 2006Q4

REPORT INFORMATION
  Report Type: 
  Country: None (occurrence: None)
  Receive Date: 20061128
  Receipt Date: 20060323
  Transmission Date: 20070319
  Serious: Yes (Other)
  Sender: FDA-Public Use
  Company Number: 2006038613

PATIENT
  Sex: Female
  Weight: 65.7716 kg

DRUGS (4)
  1. TIKOSYN [Suspect]
     Indication: ATRIAL FIBRILLATION
     Dosage: 125 MCG (125 MCG, DAILY, INTERVAL: EVERY DAY), ORAL
     Route: 048
  2. PLAVIX [Concomitant]
  3. LEVOXYL [Concomitant]
  4. CYMBALTA [Concomitant]

REACTIONS (4)
  - ALOPECIA [None]
  - ATRIAL FIBRILLATION [None]
  - FATIGUE [None]
  - HYPOTRICHOSIS [None]
